FAERS Safety Report 6639670-6 (Version None)
Quarter: 2010Q1

REPORT INFORMATION
  Report Type: 
  Country: None (occurrence: None)
  Receive Date: 20100318
  Receipt Date: 20100308
  Transmission Date: 20100710
  Serious: Yes (Other)
  Sender: FDA-Public Use
  Company Number: JP-JNJFOC-20090302425

PATIENT
  Sex: Female
  Weight: 63 kg

DRUGS (6)
  1. REMICADE [Suspect]
     Indication: RHEUMATOID ARTHRITIS
     Dosage: 2ND INFUSION
     Route: 042
  2. REMICADE [Suspect]
     Dosage: 1 INFUSION ON UNSPECIFIED DATE
     Route: 042
  3. RHEUMATREX [Concomitant]
     Indication: RHEUMATOID ARTHRITIS
     Route: 048
  4. RHEUMATREX [Concomitant]
     Route: 048
  5. RHEUMATREX [Concomitant]
     Route: 048
  6. ISCOTIN [Concomitant]
     Indication: ANTIBIOTIC PROPHYLAXIS
     Route: 048

REACTIONS (2)
  - LIVER DISORDER [None]
  - OSTEONECROSIS [None]
